FAERS Safety Report 24934516 (Version 5)
Quarter: 2025Q2

REPORT INFORMATION
  Report Type: Report from Study
  Country: CA (occurrence: CA)
  Receive Date: 20250206
  Receipt Date: 20250623
  Transmission Date: 20250717
  Serious: Yes (Other)
  Sender: JOHNSON AND JOHNSON
  Company Number: CA-JNJFOC-20250200901

PATIENT
  Age: 52 Year
  Sex: Female
  Weight: 110 kg

DRUGS (1)
  1. REMICADE [Suspect]
     Active Substance: INFLIXIMAB
     Indication: Crohn^s disease
     Dosage: EXPIRY DATE REPORTED AS MAY-2027
     Route: 041
     Dates: start: 20210210

REACTIONS (1)
  - Paradoxical psoriasis [Recovered/Resolved]

NARRATIVE: CASE EVENT DATE: 20250101
